FAERS Safety Report 9190600 (Version 1)
Quarter: 2013Q1

REPORT INFORMATION
  Report Type: Spontaneous
  Country: US (occurrence: None)
  Receive Date: 20120703
  Receipt Date: 20120703
  Transmission Date: 20140127
  Serious: Yes (Other)
  Sender: FDA-Public Use
  Company Number: PHEH2012US005142

PATIENT
  Age: 29 Year
  Sex: Male
  Weight: 85.3 kg

DRUGS (3)
  1. GILENYA (FTY) CAPSULE, 0.5 MG [Suspect]
     Indication: MULTIPLE SCLEROSIS
     Route: 048
     Dates: start: 20110420, end: 20120116
  2. LOSARTAN (LOSARTAN) [Concomitant]
  3. CARVEDILOL (CARVEDILOL) [Concomitant]

REACTIONS (2)
  - White blood cell count decreased [None]
  - Lymphocyte count decreased [None]
